FAERS Safety Report 9989343 (Version 1)
Quarter: 2014Q1

REPORT INFORMATION
  Report Type: Spontaneous
  Country: US (occurrence: None)
  Receive Date: 20140113
  Receipt Date: 20140113
  Transmission Date: 20141002
  Serious: Yes (Hospitalization)
  Sender: FDA-Public Use
  Company Number: None

PATIENT
  Age: 44 Year
  Sex: Male
  Weight: 100.7 kg

DRUGS (3)
  1. RANIBIZUMAB [Suspect]
     Indication: DIABETIC RETINAL OEDEMA
     Dosage: 0.05ML MONTHLY INTRAVITR
     Dates: start: 20131126
  2. LEVEMIR [Concomitant]
  3. NOVOLOG [Concomitant]

REACTIONS (1)
  - Localised infection [None]
